FAERS Safety Report 6149967-4 (Version None)
Quarter: 2009Q2

REPORT INFORMATION
  Report Type: 
  Country: None (occurrence: None)
  Receive Date: 20090409
  Receipt Date: 20090403
  Transmission Date: 20091009
  Serious: Yes (Hospitalization)
  Sender: FDA-Public Use
  Company Number: A0776875A

PATIENT
  Age: 66 Year
  Sex: Female

DRUGS (4)
  1. ADVAIR HFA [Suspect]
     Indication: EMPHYSEMA
     Dosage: 1PUFF PER DAY
     Route: 055
     Dates: start: 20070101
  2. COMBIVENT [Concomitant]
  3. NASONEX [Concomitant]
  4. FLUTICASONE PROPIONATE [Concomitant]
     Route: 045

REACTIONS (2)
  - GLOSSODYNIA [None]
  - RESPIRATORY TRACT INFECTION VIRAL [None]
